FAERS Safety Report 7767843-8 (Version None)
Quarter: 2011Q3

REPORT INFORMATION
  Report Type: 
  Country: None (occurrence: None)
  Receive Date: 20110922
  Receipt Date: 20110524
  Transmission Date: 20111222
  Serious: Yes (Hospitalization, Other)
  Sender: FDA-Public Use
  Company Number: US-ASTRAZENECA-2009UW12948

PATIENT
  Age: 30 Year
  Sex: Female
  Weight: 81.6 kg

DRUGS (12)
  1. SEROQUEL [Suspect]
     Route: 048
     Dates: start: 20071001
  2. CLONAZEPAM [Concomitant]
     Dates: start: 20090810
  3. PREDNISONE [Concomitant]
     Dates: start: 20090810
  4. MORPHINE SULFATE [Concomitant]
     Dates: start: 20090810
  5. OXYCODONE HCL [Concomitant]
     Dosage: 30 MG IMM REL 1/2 TO 1 TABLET THREE TIMES A DAY
     Dates: start: 20090810
  6. CYMBALTA [Concomitant]
     Dates: start: 20080101
  7. ADVAIR DISKUS 100/50 [Concomitant]
     Dosage: 250.50 MCG / DOSE 1 EVERY 12 HRS
     Dates: start: 20090810
  8. CYMBALTA [Concomitant]
     Dosage: 30 MG 1 CAPSULE 2 TABLETS AT NIGHT
     Dates: start: 20090810
  9. LEVOTHYROXINE SODIUM [Concomitant]
     Dosage: 50 MCG 1 TAB EVERY MORNING
     Route: 048
     Dates: start: 20090810
  10. SEROQUEL [Suspect]
     Indication: SLEEP DISORDER
     Dosage: 50 MG TO 300 MG
     Route: 048
     Dates: start: 20010101, end: 20060101
  11. PHENERGAN HCL [Concomitant]
     Dosage: 25 MG 1 TABLET AS NEEDED EVERY 12 HRS
     Dates: start: 20090810
  12. ALBUTEROL [Concomitant]
     Dosage: 90 MCH / ACT 2 PUFFS AS NEEDED EVERY 6 HRS
     Dates: start: 20090810

REACTIONS (9)
  - ABDOMINAL PAIN [None]
  - FIBROMYALGIA [None]
  - DIABETES MELLITUS [None]
  - OBESITY [None]
  - HYPERGLYCAEMIA [None]
  - WEIGHT INCREASED [None]
  - TARDIVE DYSKINESIA [None]
  - PITUITARY TUMOUR BENIGN [None]
  - BLOOD CHOLESTEROL INCREASED [None]
